FAERS Safety Report 11254974 (Version 2)
Quarter: 2015Q3

REPORT INFORMATION
  Report Type: Spontaneous
  Country: US (occurrence: US)
  Receive Date: 20150709
  Receipt Date: 20150817
  Transmission Date: 20151125
  Serious: No
  Sender: FDA-Public Use
  Company Number: US-ASTRAZENECA-2010BM04543

PATIENT
  Age: 699 Month
  Sex: Female
  Weight: 102.1 kg

DRUGS (8)
  1. BYDUREON [Suspect]
     Active Substance: EXENATIDE
     Route: 058
  2. GLYBURIDE. [Concomitant]
     Active Substance: GLYBURIDE
  3. PRANDIN /USA/ [Concomitant]
  4. BYETTA [Suspect]
     Active Substance: EXENATIDE
     Indication: TYPE 2 DIABETES MELLITUS
     Route: 058
     Dates: start: 200703, end: 200704
  5. BYETTA [Suspect]
     Active Substance: EXENATIDE
     Indication: TYPE 2 DIABETES MELLITUS
     Route: 058
     Dates: start: 200704
  6. ALTACE [Concomitant]
     Active Substance: RAMIPRIL
     Indication: DIABETES MELLITUS
     Dosage: UNK
  7. ALTACE [Concomitant]
     Active Substance: RAMIPRIL
     Indication: CARDIAC DISORDER
     Dosage: UNK
  8. ATARAX [Concomitant]
     Active Substance: HYDROXYZINE\HYDROXYZINE HYDROCHLORIDE

REACTIONS (5)
  - Injection site haemorrhage [Unknown]
  - Intentional device misuse [Unknown]
  - Injection site extravasation [Unknown]
  - Underdose [Unknown]
  - Weight decreased [Unknown]

NARRATIVE: CASE EVENT DATE: 200703
